FAERS Safety Report 7544248-6 (Version None)
Quarter: 2011Q2

REPORT INFORMATION
  Report Type: 
  Country: None (occurrence: None)
  Receive Date: 20110613
  Receipt Date: 20070508
  Transmission Date: 20111010
  Serious: Yes (Hospitalization, Other)
  Sender: FDA-Public Use
  Company Number: PHEH2007US05473

PATIENT
  Sex: Female

DRUGS (11)
  1. EXJADE [Suspect]
     Indication: IRON OVERLOAD
     Dosage: 2250 MG, QD
     Route: 048
     Dates: start: 20070313, end: 20070323
  2. FOLIC ACID [Concomitant]
     Dosage: 1 MG, UNK
  3. ACETAMINOPHEN [Concomitant]
  4. REVLIMID [Concomitant]
     Indication: PANCYTOPENIA
     Dosage: 10 MG, UNK
     Dates: start: 20070207, end: 20070409
  5. LEVOFLOXACIN [Concomitant]
     Dosage: 750 MG, QOD
  6. MELOXICAM [Concomitant]
     Dosage: 7.5 MG, UNK
  7. EXJADE [Suspect]
     Dosage: 2250 MG, QD
     Route: 048
     Dates: start: 20070330
  8. ESCITALOPRAM [Concomitant]
     Dosage: 10 MG, QID
  9. PLATELETS [Concomitant]
  10. PYRIDOXINE [Concomitant]
  11. VITAMIN B-12 [Concomitant]

REACTIONS (16)
  - SWELLING [None]
  - URINARY TRACT INFECTION BACTERIAL [None]
  - DISSEMINATED INTRAVASCULAR COAGULATION [None]
  - CELLULITIS [None]
  - FATIGUE [None]
  - KLEBSIELLA SEPSIS [None]
  - THROMBOCYTOPENIA [None]
  - AGRANULOCYTOSIS [None]
  - WHITE BLOOD CELL COUNT DECREASED [None]
  - TENDERNESS [None]
  - GAIT DISTURBANCE [None]
  - ERYTHEMA [None]
  - BODY TEMPERATURE INCREASED [None]
  - HAEMOGLOBIN DECREASED [None]
  - BLOOD CREATININE INCREASED [None]
  - BLOOD UREA INCREASED [None]
